FAERS Safety Report 5440538-1 (Version None)
Quarter: 2007Q3

REPORT INFORMATION
  Report Type: 
  Country: None (occurrence: None)
  Receive Date: 20070831
  Receipt Date: 20070827
  Transmission Date: 20080115
  Serious: Yes (Death)
  Sender: FDA-Public Use
  Company Number: US-GENENTECH-245789

PATIENT
  Age: 52 Year
  Sex: Male
  Weight: 77 kg

DRUGS (12)
  1. BEVACIZUMAB [Suspect]
     Indication: PANCREATIC CARCINOMA METASTATIC
     Dosage: 10 MG/M2, DAYS 1+15/28DC
     Route: 042
     Dates: start: 20070517, end: 20070627
  2. ERLOTINIB [Suspect]
     Indication: PANCREATIC CARCINOMA METASTATIC
     Dosage: 100 MG, QD
     Route: 048
     Dates: start: 20070517, end: 20070711
  3. GEMCITABINE HCL [Suspect]
     Indication: PANCREATIC CARCINOMA METASTATIC
     Dosage: 1000 MG/M2, DAYS1,8,15
     Route: 042
     Dates: start: 20070517, end: 20070627
  4. ATIVAN [Concomitant]
     Indication: DRUG USE FOR UNKNOWN INDICATION
  5. CELEXA [Concomitant]
     Indication: DRUG USE FOR UNKNOWN INDICATION
  6. LIDOCAINE MAALOX [Concomitant]
     Indication: DRUG USE FOR UNKNOWN INDICATION
  7. DIPHENHYDRAMINE HCL [Concomitant]
     Indication: DRUG USE FOR UNKNOWN INDICATION
  8. REGLAN [Concomitant]
     Indication: DRUG USE FOR UNKNOWN INDICATION
  9. SENNA [Concomitant]
     Indication: DRUG USE FOR UNKNOWN INDICATION
  10. SIMETHICON [Concomitant]
     Indication: DRUG USE FOR UNKNOWN INDICATION
  11. TYLENOL (CAPLET) [Concomitant]
     Indication: DRUG USE FOR UNKNOWN INDICATION
  12. ZYPREXA [Concomitant]
     Indication: DRUG USE FOR UNKNOWN INDICATION

REACTIONS (3)
  - DISEASE PROGRESSION [None]
  - MALIGNANT NEOPLASM PROGRESSION [None]
  - PANCREATIC CARCINOMA METASTATIC [None]
